FAERS Safety Report 14689893 (Version 1)
Quarter: 2018Q1

REPORT INFORMATION
  Report Type: Spontaneous
  Country: US (occurrence: US)
  Receive Date: 20180328
  Receipt Date: 20180328
  Transmission Date: 20180509
  Serious: No
  Sender: FDA-Public Use
  Company Number: US-SMITH AND NEPHEW, INC-2017SMT00352

PATIENT
  Sex: Female
  Weight: 90.7 kg

DRUGS (9)
  1. COLLAGENASE SANTYL [Suspect]
     Active Substance: COLLAGENASE CLOSTRIDIUM HISTOLYTICUM
     Indication: WOUND
     Dosage: UNK
     Route: 061
     Dates: start: 2017
  2. CARVEDILOL. [Concomitant]
     Active Substance: CARVEDILOL
  3. UNSPECIFIED PAIN PILL [Concomitant]
  4. UNSPECIFIED NEBULIZED MEDICATION [Concomitant]
     Dosage: UNK, 4X/DAY AS NEEDED
  5. REGRANEX [Suspect]
     Active Substance: BECAPLERMIN
     Indication: WOUND
     Dosage: UNK UNK, 2X/DAY, EVERY 12 HOURS
     Route: 061
     Dates: start: 201705
  6. VITAMIN C [Concomitant]
     Active Substance: ASCORBIC ACID
  7. AMLODIPINE [Concomitant]
     Active Substance: AMLODIPINE BESYLATE
  8. IBUPROFEN. [Concomitant]
     Active Substance: IBUPROFEN
  9. UNSPECIFIED INHALER [Concomitant]
     Active Substance: UNSPECIFIED INGREDIENT
     Dosage: UNK, 2 OR 3X/DAY

REACTIONS (6)
  - Insomnia [Unknown]
  - Wound decomposition [Not Recovered/Not Resolved]
  - Off label use [Not Recovered/Not Resolved]
  - Inappropriate schedule of drug administration [Not Recovered/Not Resolved]
  - Hyperaesthesia [Not Recovered/Not Resolved]
  - Wound complication [Not Recovered/Not Resolved]

NARRATIVE: CASE EVENT DATE: 2017
